FAERS Safety Report 25233579 (Version 1)
Quarter: 2025Q2

REPORT INFORMATION
  Report Type: Spontaneous
  Country: US (occurrence: US)
  Receive Date: 20250424
  Receipt Date: 20250424
  Transmission Date: 20250716
  Serious: Yes (Other)
  Sender: NOVARTIS
  Company Number: US-002147023-NVSC2025US065086

PATIENT

DRUGS (1)
  1. FABHALTA [Suspect]
     Active Substance: IPTACOPAN HYDROCHLORIDE
     Indication: Product used for unknown indication
     Dosage: 200 MG, BID (FOR 3MONTHS)
     Route: 065

REACTIONS (3)
  - Glomerulonephritis rapidly progressive [Unknown]
  - Proteinuria [Unknown]
  - Condition aggravated [Unknown]
